FAERS Safety Report 5209874-8 (Version None)
Quarter: 2006Q4

REPORT INFORMATION
  Report Type: 
  Country: None (occurrence: None)
  Receive Date: 20061130
  Receipt Date: 20060501
  Transmission Date: 20070319
  Serious: Yes (Other)
  Sender: FDA-Public Use
  Company Number: 2006058034

PATIENT

DRUGS (2)
  1. ZYVOX [Suspect]
     Indication: ILL-DEFINED DISORDER
  2. SSRI [Concomitant]

REACTIONS (2)
  - ANXIETY [None]
  - SEROTONIN SYNDROME [None]
